FAERS Safety Report 24837860 (Version 1)
Quarter: 2025Q1

REPORT INFORMATION
  Report Type: Spontaneous
  Country: AU (occurrence: AU)
  Receive Date: 20250113
  Receipt Date: 20250113
  Transmission Date: 20250409
  Serious: Yes (Death)
  Sender: ALEXION PHARMACEUTICALS
  Company Number: AU-ASTRAZENECA-202501GLO008397AU

PATIENT
  Age: 40 Year

DRUGS (36)
  1. QUETIAPINE FUMARATE [Suspect]
     Active Substance: QUETIAPINE FUMARATE
     Route: 065
  2. QUETIAPINE FUMARATE [Suspect]
     Active Substance: QUETIAPINE FUMARATE
     Route: 065
  3. QUETIAPINE FUMARATE [Suspect]
     Active Substance: QUETIAPINE FUMARATE
     Route: 065
  4. QUETIAPINE FUMARATE [Suspect]
     Active Substance: QUETIAPINE FUMARATE
     Route: 065
  5. CODEINE [Suspect]
     Active Substance: CODEINE
     Route: 065
  6. CODEINE [Suspect]
     Active Substance: CODEINE
     Route: 065
  7. DIAZEPAM [Suspect]
     Active Substance: DIAZEPAM
     Route: 065
  8. DIAZEPAM [Suspect]
     Active Substance: DIAZEPAM
     Route: 065
  9. DOXYLAMINE SUCCINATE [Suspect]
     Active Substance: DOXYLAMINE SUCCINATE
     Route: 065
  10. DOXYLAMINE SUCCINATE [Suspect]
     Active Substance: DOXYLAMINE SUCCINATE
     Route: 065
  11. DULOXETINE HYDROCHLORIDE [Suspect]
     Active Substance: DULOXETINE HYDROCHLORIDE
     Route: 065
  12. DULOXETINE HYDROCHLORIDE [Suspect]
     Active Substance: DULOXETINE HYDROCHLORIDE
     Route: 065
  13. MIRTAZAPINE [Suspect]
     Active Substance: MIRTAZAPINE
     Route: 065
  14. MIRTAZAPINE [Suspect]
     Active Substance: MIRTAZAPINE
     Route: 065
  15. MORPHINE [Suspect]
     Active Substance: MORPHINE
     Route: 065
  16. MORPHINE [Suspect]
     Active Substance: MORPHINE
     Route: 065
  17. MORPHINE [Suspect]
     Active Substance: MORPHINE
     Route: 065
  18. MORPHINE [Suspect]
     Active Substance: MORPHINE
     Route: 065
  19. OXAZEPAM [Suspect]
     Active Substance: OXAZEPAM
     Route: 065
  20. OXAZEPAM [Suspect]
     Active Substance: OXAZEPAM
     Route: 065
  21. TEMAZEPAM [Suspect]
     Active Substance: TEMAZEPAM
     Route: 065
  22. TEMAZEPAM [Suspect]
     Active Substance: TEMAZEPAM
     Route: 065
  23. TOPIRAMATE [Suspect]
     Active Substance: TOPIRAMATE
     Route: 065
  24. TOPIRAMATE [Suspect]
     Active Substance: TOPIRAMATE
     Route: 065
  25. TOPIRAMATE [Suspect]
     Active Substance: TOPIRAMATE
     Route: 065
  26. TOPIRAMATE [Suspect]
     Active Substance: TOPIRAMATE
     Route: 065
  27. HYDROXYCHLOROQUINE SULFATE [Concomitant]
     Active Substance: HYDROXYCHLOROQUINE SULFATE
     Route: 065
  28. HYDROXYCHLOROQUINE SULFATE [Concomitant]
     Active Substance: HYDROXYCHLOROQUINE SULFATE
     Route: 065
  29. METFORMIN HYDROCHLORIDE [Concomitant]
     Active Substance: METFORMIN HYDROCHLORIDE
     Route: 065
  30. METFORMIN HYDROCHLORIDE [Concomitant]
     Active Substance: METFORMIN HYDROCHLORIDE
     Route: 065
  31. ACETAMINOPHEN [Concomitant]
     Active Substance: ACETAMINOPHEN
     Route: 065
  32. ACETAMINOPHEN [Concomitant]
     Active Substance: ACETAMINOPHEN
     Route: 065
  33. PROPRANOLOL HYDROCHLORIDE [Concomitant]
     Active Substance: PROPRANOLOL HYDROCHLORIDE
     Route: 065
  34. PROPRANOLOL HYDROCHLORIDE [Concomitant]
     Active Substance: PROPRANOLOL HYDROCHLORIDE
     Route: 065
  35. TRIMETHOPRIM [Concomitant]
     Active Substance: TRIMETHOPRIM
     Route: 065
  36. TRIMETHOPRIM [Concomitant]
     Active Substance: TRIMETHOPRIM
     Route: 065

REACTIONS (2)
  - Intentional overdose [Fatal]
  - Toxicity to various agents [Fatal]
